FAERS Safety Report 13233326 (Version 1)
Quarter: 2017Q1

REPORT INFORMATION
  Report Type: Spontaneous
  Country: US (occurrence: US)
  Receive Date: 20170214
  Receipt Date: 20170214
  Transmission Date: 20170428
  Serious: No
  Sender: FDA-Public Use
  Company Number: None

PATIENT
  Age: 54 Year
  Sex: Female

DRUGS (1)
  1. ACTHAR [Suspect]
     Active Substance: CORTICOTROPIN
     Indication: ANKYLOSING SPONDYLITIS

REACTIONS (5)
  - Headache [None]
  - Accidental overdose [None]
  - Palpitations [None]
  - Blood pressure increased [None]
  - Swelling [None]

NARRATIVE: CASE EVENT DATE: 20170209
